FAERS Safety Report 8502323-3 (Version None)
Quarter: 2012Q2

REPORT INFORMATION
  Report Type: 
  Country: None (occurrence: None)
  Receive Date: 20120405
  Receipt Date: 20100915
  Transmission Date: 20120825
  Serious: Yes (Other)
  Sender: FDA-Public Use
  Company Number: PHHY2010US61479

PATIENT
  Age: 68 Year
  Sex: Female

DRUGS (8)
  1. TENORMIN (ATENLOLO) [Concomitant]
  2. VITAMIN D [Concomitant]
  3. VITAMIN B COMPLEX CAP [Concomitant]
  4. CALCIUM CARBONATE [Concomitant]
  5. RECLAST [Suspect]
     Dosage: INTRAVENOUS
     Route: 042
     Dates: start: 20100101
  6. AZOPT [Concomitant]
  7. XANAX [Concomitant]
  8. NEXIUM [Concomitant]

REACTIONS (5)
  - DYSSTASIA [None]
  - NECK PAIN [None]
  - MUSCULOSKELETAL PAIN [None]
  - BLOOD CALCIUM DECREASED [None]
  - PAIN IN EXTREMITY [None]
